FAERS Safety Report 4934200-9 (Version None)
Quarter: 2006Q1

REPORT INFORMATION
  Report Type: 
  Country: None (occurrence: None)
  Receive Date: 20060303
  Receipt Date: 20060223
  Transmission Date: 20060701
  Serious: Yes (Disabling, Other)
  Sender: FDA-Public Use
  Company Number: 200512680BWH

PATIENT
  Age: 66 Year
  Sex: Male
  Weight: 79.3795 kg

DRUGS (1)
  1. LEVITRA [Suspect]
     Indication: ERECTILE DYSFUNCTION
     Dosage: 20 MG, TOTAL DAILY, ORAL
     Route: 048
     Dates: start: 20050212, end: 20050401

REACTIONS (9)
  - BLINDNESS UNILATERAL [None]
  - CATARACT [None]
  - CHOROIDAL NEOVASCULARISATION [None]
  - IMPAIRED DRIVING ABILITY [None]
  - IMPAIRED WORK ABILITY [None]
  - MACULAR DEGENERATION [None]
  - PHOTOSENSITIVITY REACTION [None]
  - VISUAL DISTURBANCE [None]
  - VISUAL FIELD DEFECT [None]
